FAERS Safety Report 25051872 (Version 4)
Quarter: 2025Q3

REPORT INFORMATION
  Report Type: Report from Study
  Country: CA (occurrence: CA)
  Receive Date: 20250307
  Receipt Date: 20250902
  Transmission Date: 20251021
  Serious: Yes (Other)
  Sender: TAKEDA
  Company Number: CA-TAKEDA-2025TUS023741

PATIENT
  Age: 61 Year
  Sex: Male

DRUGS (3)
  1. VEDOLIZUMAB [Suspect]
     Active Substance: VEDOLIZUMAB
     Indication: Crohn^s disease
  2. VEDOLIZUMAB [Suspect]
     Active Substance: VEDOLIZUMAB
     Indication: Crohn^s disease
     Dosage: 108 MILLIGRAM, Q2WEEKS
     Dates: start: 20250319
  3. Cortiment [Concomitant]

REACTIONS (5)
  - Crohn^s disease [Unknown]
  - Dyschezia [Not Recovered/Not Resolved]
  - Faeces discoloured [Recovered/Resolved]
  - Therapeutic reaction time decreased [Unknown]
  - Cough [Unknown]

NARRATIVE: CASE EVENT DATE: 20250301
